FAERS Safety Report 24273489 (Version 1)
Quarter: 2024Q3

REPORT INFORMATION
  Report Type: Spontaneous
  Country: US (occurrence: US)
  Receive Date: 20240902
  Receipt Date: 20240902
  Transmission Date: 20241017
  Serious: No
  Sender: SANOFI AVENTIS
  Company Number: US-SA-2024SA251840

PATIENT
  Age: 63 Year
  Sex: Female
  Weight: 17 kg

DRUGS (1)
  1. DUPIXENT [Suspect]
     Active Substance: DUPILUMAB
     Indication: Asthma
     Dosage: 300 MG 1 DOSE EVERY 2 WEEK
     Route: 058

REACTIONS (1)
  - Pain in extremity [Unknown]
